FAERS Safety Report 12591619 (Version 1)
Quarter: 2016Q3

REPORT INFORMATION
  Report Type: Spontaneous
  Country: US (occurrence: US)
  Receive Date: 20160726
  Receipt Date: 20160726
  Transmission Date: 20161109
  Serious: Yes (Other)
  Sender: FDA-Public Use
  Company Number: US-ASTRAZENECA-2016SE79455

PATIENT
  Age: 75 Year
  Sex: Female

DRUGS (2)
  1. EXTEVIA [Concomitant]
     Indication: BONE LOSS
     Route: 065
  2. FASLODEX [Suspect]
     Active Substance: FULVESTRANT
     Indication: BREAST CANCER FEMALE
     Route: 030

REACTIONS (2)
  - Metastases to bone [Unknown]
  - Hypoaesthesia [Unknown]
